FAERS Safety Report 24699007 (Version 1)
Quarter: 2024Q4

REPORT INFORMATION
  Report Type: Spontaneous
  Country: US (occurrence: US)
  Receive Date: 20241205
  Receipt Date: 20241205
  Transmission Date: 20250115
  Serious: Yes (Other)
  Sender: AMGEN
  Company Number: US-AMGEN-USASP2024235222

PATIENT
  Sex: Female

DRUGS (1)
  1. ENBREL [Suspect]
     Active Substance: ETANERCEPT
     Indication: Product used for unknown indication
     Dosage: UNK
     Route: 065

REACTIONS (9)
  - Rheumatoid arthritis [Unknown]
  - Sjogren^s syndrome [Unknown]
  - Interstitial lung disease [Unknown]
  - Bronchiectasis [Unknown]
  - Sputum purulent [Unknown]
  - Pulmonary cavitation [Unknown]
  - Tachycardia [Unknown]
  - Productive cough [Unknown]
  - Dyspnoea [Unknown]
